FAERS Safety Report 22247256 (Version 2)
Quarter: 2023Q4

REPORT INFORMATION
  Report Type: Report from Study
  Country: US (occurrence: US)
  Receive Date: 20230424
  Receipt Date: 20231206
  Transmission Date: 20240110
  Serious: Yes (Other)
  Sender: FDA-Public Use
  Company Number: US-ETON PHARMACEUTICALS, INC-2023ETO000084

PATIENT

DRUGS (4)
  1. ALKINDI SPRINKLE [Suspect]
     Active Substance: HYDROCORTISONE
     Indication: Adrenogenital syndrome
     Dosage: 5 MILLIGRAM, TID
     Route: 048
     Dates: start: 20220429, end: 202210
  2. ALKINDI SPRINKLE [Suspect]
     Active Substance: HYDROCORTISONE
     Dosage: 10 MG IN MORNING AND EVENING AND 7 MG IN AFTERNOON
     Route: 048
     Dates: start: 20221020
  3. MULTIVITAMIN                       /00097801/ [Concomitant]
     Indication: Product used for unknown indication
     Dosage: UNK
  4. FEMARA [Concomitant]
     Active Substance: LETROZOLE
     Indication: Product used for unknown indication
     Dosage: 2.5 MG/D, QD
     Route: 048
     Dates: start: 20220726

REACTIONS (6)
  - Hand fracture [Unknown]
  - Epistaxis [Unknown]
  - Medial tibial stress syndrome [Unknown]
  - Arthralgia [Unknown]
  - Headache [Unknown]
  - Acne [Unknown]

NARRATIVE: CASE EVENT DATE: 20221121
